FAERS Safety Report 11860495 (Version 2)
Quarter: 2016Q2

REPORT INFORMATION
  Report Type: Spontaneous
  Country: US (occurrence: US)
  Receive Date: 20151222
  Receipt Date: 20160408
  Transmission Date: 20160815
  Serious: No
  Sender: FDA-Public Use
  Company Number: US-PFIZER INC-2015444104

PATIENT
  Age: 33 Year
  Sex: Female
  Weight: 116 kg

DRUGS (2)
  1. PROVERA [Suspect]
     Active Substance: MEDROXYPROGESTERONE ACETATE
     Indication: POLYCYSTIC OVARIES
     Dosage: 10 MG, 10 DAYS OUT OF THE MONTH
     Route: 048
     Dates: start: 201409, end: 20151108
  2. PROVERA [Suspect]
     Active Substance: MEDROXYPROGESTERONE ACETATE
     Indication: DYSFUNCTIONAL UTERINE BLEEDING
     Dosage: 10 MG, 1X/DAY (10 MG Q DAY X 10 DAYS/ MONTH)
     Route: 048

REACTIONS (1)
  - Abdominal pain [Recovering/Resolving]

NARRATIVE: CASE EVENT DATE: 201409
